FAERS Safety Report 8204655-5 (Version None)
Quarter: 2012Q1

REPORT INFORMATION
  Report Type: 
  Country: None (occurrence: None)
  Receive Date: 20120313
  Receipt Date: 20120311
  Transmission Date: 20120608
  Serious: Yes (Other)
  Sender: FDA-Public Use
  Company Number: IL-JNJFOC-20120302452

PATIENT
  Age: 50 Year
  Sex: Male

DRUGS (30)
  1. VINCRISTINE [Suspect]
     Route: 065
  2. PREDNISONE [Suspect]
     Route: 065
  3. DOXORUBICIN HCL [Suspect]
     Route: 042
  4. CYCLOPHOSPHAMIDE [Suspect]
     Route: 065
  5. VINCRISTINE [Suspect]
     Indication: DIFFUSE LARGE B-CELL LYMPHOMA
     Route: 065
  6. VINCRISTINE [Suspect]
     Route: 065
  7. RITUXIMAB [Suspect]
     Route: 065
  8. CYCLOPHOSPHAMIDE [Suspect]
     Indication: DIFFUSE LARGE B-CELL LYMPHOMA
     Route: 065
  9. CYCLOPHOSPHAMIDE [Suspect]
     Route: 065
  10. VINCRISTINE [Suspect]
     Route: 065
  11. PREDNISONE [Suspect]
     Route: 065
  12. DOXORUBICIN HCL [Suspect]
     Route: 042
  13. RITUXIMAB [Suspect]
     Route: 065
  14. VINCRISTINE [Suspect]
     Route: 065
  15. DOXORUBICIN HCL [Suspect]
     Indication: DIFFUSE LARGE B-CELL LYMPHOMA
     Route: 042
  16. DOXORUBICIN HCL [Suspect]
     Route: 042
  17. RITUXIMAB [Suspect]
     Route: 065
  18. VINCRISTINE [Suspect]
     Route: 065
  19. DOXORUBICIN HCL [Suspect]
     Route: 042
  20. CYCLOPHOSPHAMIDE [Suspect]
     Route: 065
  21. CYCLOPHOSPHAMIDE [Suspect]
     Route: 065
  22. PREDNISONE [Suspect]
     Route: 065
  23. DOXORUBICIN HCL [Suspect]
     Route: 042
  24. RITUXIMAB [Suspect]
     Route: 065
  25. CYCLOPHOSPHAMIDE [Suspect]
     Route: 065
  26. RITUXIMAB [Suspect]
     Indication: DIFFUSE LARGE B-CELL LYMPHOMA
     Route: 065
  27. RITUXIMAB [Suspect]
     Route: 065
  28. PREDNISONE [Suspect]
     Indication: DIFFUSE LARGE B-CELL LYMPHOMA
     Route: 065
  29. PREDNISONE [Suspect]
     Route: 065
  30. PREDNISONE [Suspect]
     Route: 065

REACTIONS (1)
  - PNEUMOCYSTIS JIROVECI PNEUMONIA [None]
